FAERS Safety Report 11642890 (Version 5)
Quarter: 2019Q4

REPORT INFORMATION
  Report Type: Report from Study
  Country: CA (occurrence: CA)
  Receive Date: 20151020
  Receipt Date: 20191120
  Transmission Date: 20200122
  Serious: Yes (Other)
  Sender: FDA-Public Use
  Company Number: CA-ROCHE-1648174

PATIENT
  Age: 61 Year
  Sex: Male
  Weight: 95.2 kg

DRUGS (13)
  1. NORVASC [Concomitant]
     Active Substance: AMLODIPINE BESYLATE
  2. PREDNISONE. [Concomitant]
     Active Substance: PREDNISONE
  3. RITUXAN [Suspect]
     Active Substance: RITUXIMAB
     Route: 042
  4. RITUXAN [Suspect]
     Active Substance: RITUXIMAB
     Route: 042
     Dates: start: 20160707
  5. INSULIN [Concomitant]
     Active Substance: INSULIN NOS
  6. RISEDRONATE [Concomitant]
     Active Substance: RISEDRONATE SODIUM
  7. MONOCOR [Concomitant]
     Active Substance: BISOPROLOL FUMARATE
  8. RITUXAN [Suspect]
     Active Substance: RITUXIMAB
     Indication: VASCULITIS
     Dosage: 10/JAN/2018, RECENT DOSE
     Route: 042
     Dates: start: 20150917
  9. VIT D [Concomitant]
     Active Substance: VITAMIN D NOS
  10. PANTOLOC [PANTOPRAZOLE] [Concomitant]
     Active Substance: PANTOPRAZOLE SODIUM
  11. NESINA [Concomitant]
     Active Substance: ALOGLIPTIN BENZOATE
  12. RITUXAN [Suspect]
     Active Substance: RITUXIMAB
     Route: 042
     Dates: start: 20190509
  13. LYRICA [Concomitant]
     Active Substance: PREGABALIN

REACTIONS (6)
  - Blood pressure increased [Unknown]
  - Intentional product use issue [Unknown]
  - Platelet count decreased [Not Recovered/Not Resolved]
  - Blood pressure systolic increased [Unknown]
  - Blood pressure systolic abnormal [Unknown]
  - Off label use [Unknown]

NARRATIVE: CASE EVENT DATE: 20180705
